FAERS Safety Report 5330204-5 (Version None)
Quarter: 2007Q2

REPORT INFORMATION
  Report Type: 
  Country: None (occurrence: None)
  Receive Date: 20070521
  Receipt Date: 20070508
  Transmission Date: 20071010
  Serious: Yes (Other)
  Sender: FDA-Public Use
  Company Number: US-ELI_LILLY_AND_COMPANY-US200705002526

PATIENT
  Age: 49 Year
  Sex: Female

DRUGS (2)
  1. CYMBALTA [Suspect]
     Dosage: 60 MG, UNK
     Route: 048
     Dates: start: 20061201, end: 20070505
  2. CYMBALTA [Suspect]
     Dosage: UNK MG, UNK
     Route: 048
     Dates: start: 20070507

REACTIONS (1)
  - HYPERTENSION [None]
